FAERS Safety Report 5852456-5 (Version None)
Quarter: 2008Q3

REPORT INFORMATION
  Report Type: 
  Country: None (occurrence: None)
  Receive Date: 20080821
  Receipt Date: 20080811
  Transmission Date: 20090109
  Serious: Yes (Hospitalization)
  Sender: FDA-Public Use
  Company Number: US-JNJFOC-20080802242

PATIENT
  Sex: Male
  Weight: 61.2 kg

DRUGS (5)
  1. REMICADE [Suspect]
     Indication: COLITIS ULCERATIVE
     Route: 042
  2. METRONIDAZOLE [Concomitant]
  3. PREDNISONE TAB [Concomitant]
  4. CIPRO [Concomitant]
  5. OMEPRAZOLE [Concomitant]
     Indication: ANTACID THERAPY

REACTIONS (1)
  - COLITIS ULCERATIVE [None]
